FAERS Safety Report 11434239 (Version 1)
Quarter: 2015Q3

REPORT INFORMATION
  Report Type: Spontaneous
  Country: GB (occurrence: GB)
  Receive Date: 20150831
  Receipt Date: 20150831
  Transmission Date: 20151125
  Serious: Yes (Life-Threatening, Hospitalization)
  Sender: FDA-Public Use
  Company Number: GB-JNJFOC-20150820062

PATIENT
  Age: 16 Year
  Sex: Female
  Weight: 50.8 kg

DRUGS (2)
  1. PARACETAMOL [Suspect]
     Active Substance: ACETAMINOPHEN
     Route: 065
  2. PARACETAMOL [Suspect]
     Active Substance: ACETAMINOPHEN
     Indication: DYSMENORRHOEA
     Route: 065

REACTIONS (9)
  - Dizziness [Recovered/Resolved]
  - Dyspnoea [Recovered/Resolved]
  - Feeling hot [Recovered/Resolved]
  - Skin tightness [Recovered/Resolved]
  - Sneezing [Recovered/Resolved]
  - Peripheral swelling [Recovered/Resolved with Sequelae]
  - Swelling face [Recovered/Resolved]
  - Rash macular [Recovered/Resolved]
  - Product use issue [Unknown]
